FAERS Safety Report 7384814-4 (Version None)
Quarter: 2011Q1

REPORT INFORMATION
  Report Type: 
  Country: None (occurrence: None)
  Receive Date: 20110330
  Receipt Date: 20101029
  Transmission Date: 20110831
  Serious: Yes (Hospitalization, Other)
  Sender: FDA-Public Use
  Company Number: US-BAYER-201023188NA

PATIENT
  Sex: Female
  Weight: 58.957 kg

DRUGS (2)
  1. YAZ [Suspect]
     Indication: PRODUCT USED FOR UNKNOWN INDICATION
     Route: 048
     Dates: start: 20080801
  2. RETIN-A MICRO [Concomitant]
     Dosage: UNK
     Dates: start: 20070101

REACTIONS (1)
  - PULMONARY EMBOLISM [None]
